FAERS Safety Report 5755257-1 (Version None)
Quarter: 2008Q2

REPORT INFORMATION
  Report Type: 
  Country: None (occurrence: None)
  Receive Date: 20080529
  Receipt Date: 20080529
  Transmission Date: 20081010
  Serious: Yes (Hospitalization)
  Sender: FDA-Public Use
  Company Number: None

PATIENT
  Sex: Female
  Weight: 81.1 kg

DRUGS (9)
  1. DASATINIB [Suspect]
     Indication: SARCOMA
     Dosage: 70 MG QD PO
     Route: 048
     Dates: start: 20080520
  2. LORATADINE [Concomitant]
  3. FOSAMAX [Concomitant]
  4. METAMUCIL [Concomitant]
  5. ASPIRIN [Concomitant]
  6. BENAZEPRIL HYDROCHLORIDE [Concomitant]
  7. DIOVAN [Concomitant]
  8. ZELNORM [Concomitant]
  9. HYDROCHLOROTHIAZIDE [Concomitant]

REACTIONS (1)
  - ABDOMINAL PAIN [None]
